FAERS Safety Report 6248700-5 (Version None)
Quarter: 2009Q2

REPORT INFORMATION
  Report Type: 
  Country: None (occurrence: None)
  Receive Date: 20090629
  Receipt Date: 20090403
  Transmission Date: 20091009
  Serious: No
  Sender: FDA-Public Use
  Company Number: US-TYCO HEALTHCARE/MALLINCKRODT-T200900800

PATIENT
  Sex: Female

DRUGS (1)
  1. HYDROMORPHONE [Suspect]
     Indication: PAIN
     Dosage: UNK
     Dates: start: 20090402

REACTIONS (7)
  - EAR PRURITUS [None]
  - ERYTHEMA [None]
  - EYELID OEDEMA [None]
  - FEELING HOT [None]
  - HEADACHE [None]
  - SWELLING FACE [None]
  - THROAT IRRITATION [None]
